FAERS Safety Report 5219981-1 (Version None)
Quarter: 2006Q4

REPORT INFORMATION
  Report Type: 
  Country: None (occurrence: None)
  Receive Date: 20061201
  Receipt Date: 20060717
  Transmission Date: 20070319
  Serious: No
  Sender: FDA-Public Use
  Company Number: 2006PV017689

PATIENT
  Age: 41 Year
  Sex: Female
  Weight: 92.0802 kg

DRUGS (5)
  1. BYETTA [Suspect]
     Indication: DIABETES MELLITUS NON-INSULIN-DEPENDENT
     Dosage: 5 MCG;BID;SC
     Route: 058
     Dates: start: 20060713
  2. INSULIN [Concomitant]
  3. FORTAMET [Concomitant]
  4. AVANDIA [Concomitant]
  5. TRICOR [Concomitant]

REACTIONS (8)
  - DECREASED APPETITE [None]
  - DIZZINESS [None]
  - GASTROOESOPHAGEAL REFLUX DISEASE [None]
  - HEADACHE [None]
  - INSOMNIA [None]
  - NAUSEA [None]
  - THERAPEUTIC RESPONSE UNEXPECTED [None]
  - VOMITING [None]
